FAERS Safety Report 8815835 (Version 1)
Quarter: 2012Q4

REPORT INFORMATION
  Report Type: 
  Country: US (occurrence: US)
  Receive Date: 20120928
  Receipt Date: 20120928
  Transmission Date: 20130627
  Serious: Yes (Hospitalization, Other)
  Sender: FDA-Public Use
  Company Number: US-009507513-2011SP012083

PATIENT

DRUGS (1)
  1. NUVARING [Suspect]
     Indication: CONTRACEPTION
     Route: 048
     Dates: start: 200610, end: 20090326

REACTIONS (15)
  - Hypercoagulation [Unknown]
  - Syncope [Unknown]
  - Ovarian cyst [Unknown]
  - Cervical dysplasia [Unknown]
  - Pulmonary embolism [Unknown]
  - Deep vein thrombosis [Recovered/Resolved]
  - Pulmonary infarction [Unknown]
  - Incorrect drug administration duration [Unknown]
  - Ligament sprain [Recovering/Resolving]
  - Night sweats [Unknown]
  - Genital discharge [Unknown]
  - Pelvic pain [Unknown]
  - Headache [Unknown]
  - Colonoscopy [Unknown]
  - Haemorrhoids [Unknown]
